FAERS Safety Report 7113663-7 (Version None)
Quarter: 2010Q4

REPORT INFORMATION
  Report Type: 
  Country: None (occurrence: None)
  Receive Date: 20101119
  Receipt Date: 20100915
  Transmission Date: 20110411
  Serious: Yes (Hospitalization)
  Sender: FDA-Public Use
  Company Number: US-BRISTOL-MYERS SQUIBB COMPANY-15287337

PATIENT
  Age: 65 Year
  Sex: Female
  Weight: 43 kg

DRUGS (11)
  1. ETOPOSIDE [Suspect]
  2. CARBOPLATIN [Suspect]
  3. FENTANYL [Concomitant]
     Dosage: 15 MCG Q 2-3 DAYS
  4. SPIRIVA [Concomitant]
  5. PROVENTIL [Concomitant]
  6. OMEPRAZOLE [Concomitant]
  7. POTASSIUM CHLORIDE [Concomitant]
  8. PROZAC [Concomitant]
  9. COMPAZINE [Concomitant]
  10. DECADRON [Concomitant]
  11. DILAUDID [Concomitant]

REACTIONS (2)
  - COLITIS [None]
  - WHITE BLOOD CELL COUNT DECREASED [None]
